FAERS Safety Report 7225657-1 (Version None)
Quarter: 2011Q1

REPORT INFORMATION
  Report Type: 
  Country: None (occurrence: None)
  Receive Date: 20110113
  Receipt Date: 20110104
  Transmission Date: 20110831
  Serious: Yes (Hospitalization)
  Sender: FDA-Public Use
  Company Number: FR-ASTRAZENECA-2011SE00898

PATIENT
  Age: 0 Day
  Sex: Male
  Weight: 1.7 kg

DRUGS (1)
  1. TENORMIN [Suspect]
     Route: 064
     Dates: start: 20080611, end: 20090119

REACTIONS (3)
  - RESPIRATORY DISTRESS [None]
  - FOETAL DISORDER [None]
  - JAUNDICE [None]
